FAERS Safety Report 7345298-5 (Version None)
Quarter: 2011Q1

REPORT INFORMATION
  Report Type: 
  Country: None (occurrence: None)
  Receive Date: 20110310
  Receipt Date: 20110301
  Transmission Date: 20110831
  Serious: Yes (Other)
  Sender: FDA-Public Use
  Company Number: US-ASTRAZENECA-2011SE11489

PATIENT
  Age: 70 Year
  Sex: Female
  Weight: 60.3 kg

DRUGS (5)
  1. CRESTOR [Suspect]
     Route: 048
     Dates: start: 20091201, end: 20100901
  2. LIPITOR [Suspect]
     Route: 048
     Dates: end: 20100101
  3. LIPITOR [Suspect]
     Indication: HYPERCHOLESTEROLAEMIA
     Route: 048
     Dates: start: 20000101
  4. LIPITOR [Suspect]
     Route: 048
  5. LIPITOR [Suspect]
     Route: 048
     Dates: start: 20070201, end: 20070201

REACTIONS (10)
  - ABDOMINAL DISCOMFORT [None]
  - DRUG HYPERSENSITIVITY [None]
  - HEPATIC ENZYME INCREASED [None]
  - HEPATIC PAIN [None]
  - SEASONAL ALLERGY [None]
  - STENT PLACEMENT [None]
  - BLOOD CHOLESTEROL INCREASED [None]
  - LIVER INJURY [None]
  - ANGIOPLASTY [None]
  - PHARYNGEAL DISORDER [None]
